FAERS Safety Report 4975670-X (Version None)
Quarter: 2006Q2

REPORT INFORMATION
  Report Type: 
  Country: None (occurrence: None)
  Receive Date: 20060411
  Receipt Date: 20060329
  Transmission Date: 20061013
  Serious: Yes (Other)
  Sender: FDA-Public Use
  Company Number: HQWYE386917MAR06

PATIENT
  Age: 48 Year
  Sex: Female

DRUGS (3)
  1. EFFEXOR XR [Suspect]
     Indication: MAJOR DEPRESSION
     Dosage: SEE IMAGE
     Dates: start: 20050808
  2. CLONAZEPAM [Concomitant]
  3. METOPROLOL (METOPROLOL) [Concomitant]

REACTIONS (4)
  - INTENTIONAL SELF-INJURY [None]
  - SELF-INJURIOUS IDEATION [None]
  - THERAPEUTIC RESPONSE DECREASED [None]
  - THERMAL BURN [None]
